FAERS Safety Report 9557228 (Version 2)
Quarter: 2014Q1

REPORT INFORMATION
  Report Type: Spontaneous
  Country: US (occurrence: None)
  Receive Date: 20130726
  Receipt Date: 20140123
  Transmission Date: 20141002
  Serious: Yes (Hospitalization)
  Sender: FDA-Public Use
  Company Number: UTC-032807

PATIENT
  Age: 29 Year
  Sex: Female
  Weight: 101.3 kg

DRUGS (2)
  1. REMODULIN [Suspect]
     Indication: PULMONARY ARTERIAL HYPERTENSION
     Dosage: 115.2 UG/KG (0.08 UG/KG, 1 IN 1 MIN), INTRAVENOUS DRIP
     Dates: start: 20110819
  2. ADCIRCA (TADALAFIL) [Concomitant]

REACTIONS (2)
  - Sepsis [None]
  - Anxiety [None]
